FAERS Safety Report 6530537-0 (Version None)
Quarter: 2010Q1

REPORT INFORMATION
  Report Type: 
  Country: None (occurrence: None)
  Receive Date: 20100106
  Receipt Date: 20100106
  Transmission Date: 20100710
  Serious: Yes (Other)
  Sender: FDA-Public Use
  Company Number: None

PATIENT
  Age: 9 Year
  Sex: Male
  Weight: 36 kg

DRUGS (4)
  1. METHYLPHENIDATE HCL [Suspect]
     Indication: ATTENTION DEFICIT/HYPERACTIVITY DISORDER
     Dosage: 40 MG, 1X/DAY:QD, UNKNOWN; 20 MG 1X/DAY:QD, UNKNOWN; 30 MG, 1X/DAY: QD, UNKNOWN
     Dates: start: 20070301, end: 20081101
  2. METHYLPHENIDATE HCL [Suspect]
     Indication: ATTENTION DEFICIT/HYPERACTIVITY DISORDER
     Dosage: 40 MG, 1X/DAY:QD, UNKNOWN; 20 MG 1X/DAY:QD, UNKNOWN; 30 MG, 1X/DAY: QD, UNKNOWN
     Dates: start: 20090401, end: 20090701
  3. METHYLPHENIDATE HCL [Suspect]
     Indication: ATTENTION DEFICIT/HYPERACTIVITY DISORDER
     Dosage: 40 MG, 1X/DAY:QD, UNKNOWN; 20 MG 1X/DAY:QD, UNKNOWN; 30 MG, 1X/DAY: QD, UNKNOWN
     Dates: start: 20090701
  4. CARBAMAZEPINE [Suspect]
     Indication: EPILEPSY
     Dosage: 300 MG, 1X/DAY:QD, UNKNOWN
     Dates: start: 20090401

REACTIONS (5)
  - ATTENTION DEFICIT/HYPERACTIVITY DISORDER [None]
  - CONDITION AGGRAVATED [None]
  - CONVULSION [None]
  - DRUG INEFFECTIVE [None]
  - DRUG INTERACTION [None]
